FAERS Safety Report 9752475 (Version 1)
Quarter: 2013Q4

REPORT INFORMATION
  Report Type: Spontaneous
  Country: GB (occurrence: GB)
  Receive Date: 20131213
  Receipt Date: 20131213
  Transmission Date: 20140711
  Serious: Yes (Other)
  Sender: FDA-Public Use
  Company Number: GB-JNJFOC-20131204714

PATIENT
  Age: 12 Year
  Sex: Female
  Weight: 34.4 kg

DRUGS (6)
  1. REMICADE [Suspect]
     Indication: UVEITIS
     Route: 042
     Dates: start: 20131105
  2. REMICADE [Suspect]
     Indication: UVEITIS
     Route: 042
  3. REMICADE [Suspect]
     Indication: JUVENILE IDIOPATHIC ARTHRITIS
     Route: 042
  4. REMICADE [Suspect]
     Indication: JUVENILE IDIOPATHIC ARTHRITIS
     Route: 042
     Dates: start: 20131105
  5. FOLIC ACID [Concomitant]
     Route: 065
  6. METHOTREXATE [Concomitant]
     Route: 065

REACTIONS (3)
  - Anaphylactic reaction [Recovered/Resolved]
  - Infusion related reaction [Recovered/Resolved]
  - Off label use [Unknown]
